FAERS Safety Report 18726052 (Version 2)
Quarter: 2021Q1

REPORT INFORMATION
  Report Type: Spontaneous
  Country: US (occurrence: US)
  Receive Date: 20210111
  Receipt Date: 20210201
  Transmission Date: 20210419
  Serious: Yes (Death, Hospitalization, Disabling, Other)
  Sender: FDA-Public Use
  Company Number: US-GILEAD-2021-0511854

PATIENT
  Age: 76 Year
  Sex: Male
  Weight: 79.6 kg

DRUGS (1)
  1. YESCARTA [Suspect]
     Active Substance: AXICABTAGENE CILOLEUCEL
     Indication: DIFFUSE LARGE B-CELL LYMPHOMA
     Dosage: UNK
     Route: 065
     Dates: start: 20200906, end: 20200907

REACTIONS (16)
  - Cerebrovascular accident [Fatal]
  - Neutropenia [Fatal]
  - Ventricular extrasystoles [Unknown]
  - Pancytopenia [Fatal]
  - Gastrointestinal haemorrhage [Not Recovered/Not Resolved]
  - Lymphopenia [Not Recovered/Not Resolved]
  - Aphasia [Fatal]
  - Diverticulitis intestinal perforated [Unknown]
  - Bundle branch block right [Unknown]
  - Thrombosis [Unknown]
  - Haemophagocytic lymphohistiocytosis [Fatal]
  - Thrombocytopenia [Fatal]
  - Cytokine release syndrome [Fatal]
  - Neurotoxicity [Fatal]
  - Myocardial infarction [Unknown]
  - Rales [Recovered/Resolved]

NARRATIVE: CASE EVENT DATE: 2020
